FAERS Safety Report 14312532 (Version 1)
Quarter: 2017Q4

REPORT INFORMATION
  Report Type: Spontaneous
  Country: US (occurrence: US)
  Receive Date: 20171220
  Receipt Date: 20171220
  Transmission Date: 20180321
  Serious: No
  Sender: FDA-Public Use
  Company Number: None

PATIENT
  Age: 41 Year
  Sex: Female

DRUGS (1)
  1. BENLYSTA [Suspect]
     Active Substance: BELIMUMAB

REACTIONS (4)
  - Nausea [None]
  - Vertigo [None]
  - Pharyngitis streptococcal [None]
  - Vomiting [None]

NARRATIVE: CASE EVENT DATE: 20170901
